FAERS Safety Report 8032343-7 (Version None)
Quarter: 2012Q1

REPORT INFORMATION
  Report Type: 
  Country: None (occurrence: None)
  Receive Date: 20120109
  Receipt Date: 20120109
  Transmission Date: 20120608
  Serious: Yes (Hospitalization)
  Sender: FDA-Public Use
  Company Number: None

PATIENT
  Age: 93 Year
  Sex: Male
  Weight: 72.8 kg

DRUGS (2)
  1. VANCOMYCIN [Suspect]
     Indication: STAPHYLOCOCCAL BACTERAEMIA
     Dosage: 750 MG BID IV
     Route: 042
     Dates: start: 20111006, end: 20111020
  2. VANCOMYCIN [Suspect]
     Indication: URINARY TRACT INFECTION STAPHYLOCOCCAL
     Dosage: 750 MG BID IV
     Route: 042
     Dates: start: 20111006, end: 20111020

REACTIONS (1)
  - ERYTHEMA MULTIFORME [None]
